FAERS Safety Report 7342736-9 (Version None)
Quarter: 2011Q1

REPORT INFORMATION
  Report Type: 
  Country: None (occurrence: None)
  Receive Date: 20110301
  Receipt Date: 20110217
  Transmission Date: 20110831
  Serious: Yes (Death)
  Sender: FDA-Public Use
  Company Number: JP-004778

PATIENT
  Age: 75 Year
  Sex: Male

DRUGS (10)
  1. DEGARELIX (DEGARELIX) 240 MG [Suspect]
     Indication: PROSTATE CANCER
     Dosage: 240MG, TOTAL SUBCUTANEOUS
     Route: 058
     Dates: start: 20110121, end: 20110121
  2. WARFARIN [Concomitant]
  3. AMLODIPINE [Concomitant]
  4. SAVETENS [Concomitant]
  5. YODEL [Concomitant]
  6. BAKUMONDOUTO [Concomitant]
  7. MINERALS NOS [Concomitant]
  8. TAKEPRON [Concomitant]
  9. MAGNESIUM OXIDE [Concomitant]
  10. LENDORMIN [Concomitant]

REACTIONS (4)
  - FATIGUE [None]
  - COMPLETED SUICIDE [None]
  - THIRST [None]
  - ASPHYXIA [None]
